FAERS Safety Report 4812954-X (Version None)
Quarter: 2005Q4

REPORT INFORMATION
  Report Type: 
  Country: None (occurrence: None)
  Receive Date: 20051028
  Receipt Date: 20050523
  Transmission Date: 20060501
  Serious: No
  Sender: FDA-Public Use
  Company Number: US-GLAXOSMITHKLINE-A0559752A

PATIENT
  Age: 68 Year
  Sex: Male

DRUGS (9)
  1. ADVAIR DISKUS 100/50 [Suspect]
     Indication: EMPHYSEMA
     Dosage: 1PUFF TWICE PER DAY
     Route: 055
     Dates: start: 20030501
  2. RHINOCORT [Concomitant]
  3. THEOPHYLLINE [Concomitant]
  4. LISINOPRIL [Concomitant]
  5. GEMFIBROZIL [Concomitant]
  6. METFORMIN HCL [Concomitant]
  7. TERAZOSIN HCL [Concomitant]
  8. GLIPIZIDE [Concomitant]
  9. LESCOL [Concomitant]

REACTIONS (2)
  - DYSPHONIA [None]
  - PHARYNGOLARYNGEAL PAIN [None]
